FAERS Safety Report 13498126 (Version 1)
Quarter: 2017Q2

REPORT INFORMATION
  Report Type: Spontaneous
  Country: BE (occurrence: BE)
  Receive Date: 20170428
  Receipt Date: 20170428
  Transmission Date: 20170830
  Serious: Yes (Other)
  Sender: FDA-Public Use
  Company Number: BE-PFM-2017-02915

PATIENT
  Age: 62 Year
  Sex: Female

DRUGS (4)
  1. PACLITAXEL. [Concomitant]
     Active Substance: PACLITAXEL
     Indication: PRODUCT USED FOR UNKNOWN INDICATION
     Route: 065
  2. GILOTRIF [Concomitant]
     Active Substance: AFATINIB
     Indication: PRODUCT USED FOR UNKNOWN INDICATION
     Route: 065
  3. AVASTIN [Concomitant]
     Active Substance: BEVACIZUMAB
     Indication: PRODUCT USED FOR UNKNOWN INDICATION
     Route: 065
  4. NAVELBINE [Suspect]
     Active Substance: VINORELBINE TARTRATE
     Indication: PRODUCT USED FOR UNKNOWN INDICATION
     Route: 065

REACTIONS (1)
  - Ataxia [Unknown]

NARRATIVE: CASE EVENT DATE: 20170104
